FAERS Safety Report 9347920 (Version 2)
Quarter: 2013Q3

REPORT INFORMATION
  Report Type: Spontaneous
  Country: DE (occurrence: DE)
  Receive Date: 20130614
  Receipt Date: 20130722
  Transmission Date: 20140515
  Serious: Yes (Other)
  Sender: FDA-Public Use
  Company Number: DE-ROCHE-1236666

PATIENT
  Age: 48 Year
  Sex: Female
  Weight: 90 kg

DRUGS (9)
  1. HERCEPTIN [Suspect]
     Indication: BREAST CANCER METASTATIC
     Route: 042
     Dates: start: 20121023
  2. PERJETA [Suspect]
     Indication: BREAST CANCER METASTATIC
     Route: 042
     Dates: start: 20130502
  3. DOCETAXEL [Suspect]
     Indication: BREAST CANCER METASTATIC
     Route: 042
     Dates: start: 20130502, end: 20130628
  4. FENISTIL (GERMANY) [Concomitant]
     Indication: PREMEDICATION
     Route: 042
  5. PANTOZOL (GERMANY) [Concomitant]
     Indication: GASTRITIS
     Route: 048
  6. PANTOZOL (GERMANY) [Concomitant]
     Indication: METASTASIS
  7. DEXAMETHASON [Concomitant]
     Indication: PREMEDICATION
     Route: 042
  8. GRANISETRON [Concomitant]
     Indication: PREMEDICATION
     Route: 042
  9. RANITIDINE [Concomitant]
     Indication: PREMEDICATION
     Route: 042

REACTIONS (2)
  - Pseudomembranous colitis [Unknown]
  - Diarrhoea [Not Recovered/Not Resolved]
